FAERS Safety Report 8278065-9 (Version None)
Quarter: 2012Q2

REPORT INFORMATION
  Report Type: 
  Country: None (occurrence: None)
  Receive Date: 20120412
  Receipt Date: 20120409
  Transmission Date: 20120825
  Serious: Yes (Hospitalization)
  Sender: FDA-Public Use
  Company Number: PHHY2012ES030065

PATIENT
  Age: 53 Year
  Sex: Male

DRUGS (1)
  1. PYRAZINAMIDE [Suspect]
     Indication: PULMONARY TUBERCULOSIS
     Dosage: 4 DF/DAY
     Route: 048
     Dates: start: 20070117, end: 20070301

REACTIONS (4)
  - VOMITING [None]
  - TUBULOINTERSTITIAL NEPHRITIS [None]
  - DIARRHOEA [None]
  - COUGH [None]
